FAERS Safety Report 9815641 (Version 3)
Quarter: 2016Q3

REPORT INFORMATION
  Report Type: Report from Study
  Country: US (occurrence: US)
  Receive Date: 20140114
  Receipt Date: 20160805
  Transmission Date: 20161109
  Serious: Yes (Other)
  Sender: FDA-Public Use
  Company Number: US-ROCHE-769760

PATIENT
  Age: 32 Year
  Sex: Male
  Weight: 58.8 kg

DRUGS (2)
  1. VISMODEGIB [Suspect]
     Active Substance: VISMODEGIB
     Indication: MEDULLOBLASTOMA
     Dosage: 150 MG, QD, ON DAYS 1-28?ON 18/JAN/2011, 15/FEB/2011, 15/MAR/2011, 14/APR/2011, 12/MAY/2011 PATIENT
     Route: 048
     Dates: start: 20101221, end: 20110612
  2. VISMODEGIB [Suspect]
     Active Substance: VISMODEGIB
     Dosage: 150 MG, QD?ON 18/JAN/2011, 15/FEB/2011, 15/MAR/2011, 14/APR/2011, 12/MAY/2011 PATIENT RECEIVED THE T
     Route: 048

REACTIONS (3)
  - Insomnia [Unknown]
  - Headache [Unknown]
  - Hypophosphataemia [Unknown]

NARRATIVE: CASE EVENT DATE: 20110111
